FAERS Safety Report 10907343 (Version 1)
Quarter: 2015Q1

REPORT INFORMATION
  Report Type: Spontaneous
  Country: US (occurrence: None)
  Receive Date: 20150309
  Receipt Date: 20150309
  Transmission Date: 20150721
  Serious: No
  Sender: FDA-Public Use
  Company Number: None

PATIENT
  Age: 59 Year
  Sex: Male

DRUGS (9)
  1. AMPYRA [Suspect]
     Active Substance: DALFAMPRIDINE
     Indication: MULTIPLE SCLEROSIS
     Route: 048
     Dates: start: 20140824
  2. TYSABRI [Concomitant]
     Active Substance: NATALIZUMAB
  3. BOTOX [Concomitant]
     Active Substance: ONABOTULINUMTOXINA
  4. GABAPENTIN. [Concomitant]
     Active Substance: GABAPENTIN
  5. VITAMIN B12 [Concomitant]
     Active Substance: CYANOCOBALAMIN
  6. KEFLEX [Concomitant]
     Active Substance: CEPHALEXIN
  7. MODAFINIL. [Concomitant]
     Active Substance: MODAFINIL
  8. BACLOFEN. [Concomitant]
     Active Substance: BACLOFEN
  9. SERTRALINE [Concomitant]
     Active Substance: SERTRALINE HYDROCHLORIDE

REACTIONS (1)
  - Urinary tract infection [None]

NARRATIVE: CASE EVENT DATE: 20140911
